FAERS Safety Report 22197303 (Version 6)
Quarter: 2023Q2

REPORT INFORMATION
  Report Type: Spontaneous
  Country: US (occurrence: US)
  Receive Date: 20230411
  Receipt Date: 20230522
  Transmission Date: 20230721
  Serious: No
  Sender: FDA-Public Use
  Company Number: US-PFIZER INC-PV202300058844

PATIENT
  Age: 15 Year
  Sex: Male
  Weight: 56.7 kg

DRUGS (1)
  1. GENOTROPIN [Suspect]
     Active Substance: SOMATROPIN
     Indication: Growth failure
     Dosage: 3 MG INJECTION, ONE TIME A DAY HAS THREE SITES BOTH THIGHS, BOTH SIDES OF BELLY AND BOTH BUTTOCKS
     Dates: start: 20230323

REACTIONS (3)
  - Drug dose omission by device [Unknown]
  - Incorrect dose administered by device [Unknown]
  - Device delivery system issue [Unknown]

NARRATIVE: CASE EVENT DATE: 20230325
